FAERS Safety Report 10044577 (Version 2)
Quarter: 2014Q1

REPORT INFORMATION
  Report Type: Spontaneous
  Country: US (occurrence: US)
  Receive Date: 20140328
  Receipt Date: 20140328
  Transmission Date: 20141002
  Serious: Yes (Other)
  Sender: FDA-Public Use
  Company Number: US-DSJP-DSU-2013-04889-2

PATIENT
  Sex: 0

DRUGS (1)
  1. BENICAR [Suspect]
     Indication: HYPERTENSION
     Dosage: QD
     Route: 048
     Dates: start: 2007, end: 2009

REACTIONS (12)
  - Ear infection [Unknown]
  - Cardiac disorder [Unknown]
  - Post procedural complication [Unknown]
  - Head discomfort [Unknown]
  - Pain [Unknown]
  - Ear disorder [Unknown]
  - Abscess neck [Not Recovered/Not Resolved]
  - Neck pain [Unknown]
  - Toothache [Unknown]
  - Sinusitis [Unknown]
  - Fatigue [Unknown]
  - Malaise [Unknown]
